FAERS Safety Report 19471159 (Version 1)
Quarter: 2021Q2

REPORT INFORMATION
  Report Type: Spontaneous
  Country: US (occurrence: US)
  Receive Date: 20210628
  Receipt Date: 20210628
  Transmission Date: 20210717
  Serious: Yes (Hospitalization)
  Sender: FDA-Public Use
  Company Number: None

PATIENT
  Sex: Female

DRUGS (9)
  1. DIPHEN/ATROP [Concomitant]
     Active Substance: ATROPINE SULFATE\DIPHENOXYLATE
  2. HYDOCHLOROT [Concomitant]
  3. ONDNASETRON [Concomitant]
  4. FAMOTIDINE. [Concomitant]
     Active Substance: FAMOTIDINE
  5. LETROZOLE. [Concomitant]
     Active Substance: LETROZOLE
  6. VERZENIO [Suspect]
     Active Substance: ABEMACICLIB
     Indication: BREAST CANCER FEMALE
     Route: 048
     Dates: start: 20210527
  7. LOSARTAN. [Concomitant]
     Active Substance: LOSARTAN
  8. DICYCLOMINE [Concomitant]
     Active Substance: DICYCLOMINE HYDROCHLORIDE
  9. FLUOXEITNE [Concomitant]

REACTIONS (4)
  - Red blood cell count decreased [None]
  - Diarrhoea [None]
  - Chest pain [None]
  - Dehydration [None]
